FAERS Safety Report 17952588 (Version 1)
Quarter: 2020Q2

REPORT INFORMATION
  Report Type: Report from Study
  Country: US (occurrence: US)
  Receive Date: 20200626
  Receipt Date: 20200626
  Transmission Date: 20200714
  Serious: No
  Sender: FDA-Public Use
  Company Number: NVSC2020US180754

PATIENT
  Age: 43 Year
  Sex: Male

DRUGS (1)
  1. XIIDRA [Suspect]
     Active Substance: LIFITEGRAST
     Indication: DRY EYE
     Dosage: 1 DF, BID (1 DROP EACH EYE TWICE DAILY)
     Route: 065

REACTIONS (2)
  - Product dose omission [Unknown]
  - Overdose [Unknown]
